FAERS Safety Report 8760217 (Version 2)
Quarter: 2012Q4

REPORT INFORMATION
  Report Type: Spontaneous
  Country: US (occurrence: None)
  Receive Date: 20120820
  Receipt Date: 20120918
  Transmission Date: 20130627
  Serious: Yes (Other)
  Sender: FDA-Public Use
  Company Number: FK201202267

PATIENT
  Sex: Male
  Weight: 3.8 kg

DRUGS (5)
  1. GENTAMICIN [Suspect]
     Indication: PRODUCT USED FOR UNKNOWN INDICATION
     Dosage: 1 in 24 hr
     Route: 042
     Dates: start: 20120802, end: 20120805
  2. GENTAMICIN [Suspect]
     Indication: SEPSIS
     Dosage: 1 in 24 hr
     Route: 042
     Dates: start: 20120802, end: 20120805
  3. AMPICILLIN [Suspect]
     Indication: PNEUMONIA
     Dosage: 1 in 24 hr
     Route: 042
     Dates: start: 20120802, end: 20120805
  4. D10W 500 ML BAG [Concomitant]
  5. ERYTHROMYCIN (ERYTHROMYCIN) [Concomitant]

REACTIONS (3)
  - Unresponsive to stimuli [None]
  - Hypotonic-hyporesponsive episode [None]
  - Product contamination chemical [None]
